FAERS Safety Report 6404633-2 (Version None)
Quarter: 2009Q4

REPORT INFORMATION
  Report Type: 
  Country: None (occurrence: None)
  Receive Date: 20091016
  Receipt Date: 20091012
  Transmission Date: 20100525
  Serious: Yes (Other)
  Sender: FDA-Public Use
  Company Number: CHPA2009US18062

PATIENT
  Sex: Female
  Weight: 68.481 kg

DRUGS (5)
  1. VOLTAREN [Suspect]
     Indication: ARTHRALGIA
     Dosage: UNKNOWN AMOUNT, APPLIED THREE TIMES A DAY
     Route: 061
     Dates: start: 20090817, end: 20090821
  2. VOLTAREN [Suspect]
     Indication: ARTHRITIS
  3. LISINOPRIL [Concomitant]
     Indication: HYPERTENSION
     Dosage: 5 MG, QD
     Route: 048
     Dates: start: 20080101
  4. ZOLOFT [Concomitant]
     Indication: ANXIETY
     Dosage: 100 MG, QD
     Route: 048
     Dates: start: 19970101
  5. LORA TAB [Concomitant]
     Indication: BACK PAIN
     Dosage: 500 MG, PRN FOR BACK PAIN
     Route: 048
     Dates: start: 19970101

REACTIONS (15)
  - ABDOMINAL PAIN [None]
  - ANAEMIA [None]
  - CHILLS [None]
  - DECREASED APPETITE [None]
  - DEHYDRATION [None]
  - DEPRESSION [None]
  - FAECES DISCOLOURED [None]
  - GASTRITIS [None]
  - HEADACHE [None]
  - MUSCULOSKELETAL STIFFNESS [None]
  - NAUSEA [None]
  - SWELLING [None]
  - TINNITUS [None]
  - URINARY TRACT INFECTION [None]
  - VISION BLURRED [None]
